FAERS Safety Report 6666941-X (Version None)
Quarter: 2010Q2

REPORT INFORMATION
  Report Type: 
  Country: None (occurrence: None)
  Receive Date: 20100405
  Receipt Date: 20100323
  Transmission Date: 20101027
  Serious: Yes (Other)
  Sender: FDA-Public Use
  Company Number: PHHY2010AR19151

PATIENT
  Age: 52 Year
  Sex: Female

DRUGS (1)
  1. ACLASTA [Suspect]
     Indication: OSTEOPOROSIS
     Dosage: AUUNAL AMPOULE 5MG/100ML
     Route: 042

REACTIONS (5)
  - BURSITIS [None]
  - INFLUENZA [None]
  - MYALGIA [None]
  - NAUSEA [None]
  - VOMITING [None]
